FAERS Safety Report 5903073-X (Version None)
Quarter: 2008Q3

REPORT INFORMATION
  Report Type: 
  Country: None (occurrence: None)
  Receive Date: 20080930
  Receipt Date: 20080922
  Transmission Date: 20090109
  Serious: Yes (Hospitalization, Other)
  Sender: FDA-Public Use
  Company Number: US-AVENTIS-200812195US

PATIENT
  Sex: Female
  Weight: 40.8 kg

DRUGS (15)
  1. KETEK [Suspect]
     Route: 048
     Dates: start: 20060306, end: 20060301
  2. KETEK [Suspect]
     Route: 048
     Dates: start: 20051231, end: 20060101
  3. KETEK [Suspect]
     Indication: BRONCHITIS
     Route: 048
     Dates: start: 20060306, end: 20060301
  4. KETEK [Suspect]
     Route: 048
     Dates: start: 20051231, end: 20060101
  5. KETEK [Suspect]
     Indication: SINUSITIS
     Route: 048
     Dates: start: 20060306, end: 20060301
  6. KETEK [Suspect]
     Route: 048
     Dates: start: 20051231, end: 20060101
  7. LEVONORGESTREL AND ETHINYL ESTRADIOL [Concomitant]
     Dosage: DOSE: UNK
  8. LODINE [Concomitant]
     Dosage: DOSE: UNK
     Route: 048
     Dates: end: 20051231
  9. LODINE [Concomitant]
     Dosage: DOSE: ONE TAB EVERY 6-8 HRS PRN
     Route: 048
     Dates: start: 20051231
  10. ST JOHN'S WORT [Concomitant]
     Dosage: DOSE: UNK
  11. MAXIFED DMX [Concomitant]
     Dosage: DOSE: ONE TAB
     Route: 048
     Dates: start: 20051231
  12. MAXIFED DMX [Concomitant]
     Dosage: DOSE: UNK
     Dates: start: 20060306
  13. TAMIFLU [Concomitant]
     Dosage: DOSE: UNK
     Dates: start: 20060306
  14. MOTRIN [Concomitant]
     Dosage: DOSE: UNK
     Dates: start: 20060306
  15. OPIUM ALKALOIDS AND DERIVATIVES [Concomitant]
     Dosage: DOSE: UNK
     Dates: start: 20060306

REACTIONS (36)
  - ABDOMINAL DISCOMFORT [None]
  - ABDOMINAL PAIN UPPER [None]
  - ALANINE AMINOTRANSFERASE INCREASED [None]
  - ANGIOTENSIN CONVERTING ENZYME INCREASED [None]
  - ANTINUCLEAR ANTIBODY POSITIVE [None]
  - ASPARTATE AMINOTRANSFERASE INCREASED [None]
  - ASTHENIA [None]
  - BACK PAIN [None]
  - BLOOD LACTATE DEHYDROGENASE INCREASED [None]
  - BLOOD UREA DECREASED [None]
  - COUGH [None]
  - DIARRHOEA [None]
  - EATING DISORDER [None]
  - EPISTAXIS [None]
  - FATIGUE [None]
  - FEELING ABNORMAL [None]
  - HEADACHE [None]
  - HEPATIC CYST [None]
  - HEPATITIS ACUTE [None]
  - HEPATOTOXICITY [None]
  - HYPOAESTHESIA [None]
  - IMMUNOGLOBULINS INCREASED [None]
  - LYMPHOCYTE COUNT INCREASED [None]
  - MONOCYTE COUNT INCREASED [None]
  - MYALGIA [None]
  - NAUSEA [None]
  - NECK PAIN [None]
  - NIGHT SWEATS [None]
  - PAIN [None]
  - PROCEDURAL PAIN [None]
  - PYREXIA [None]
  - RED BLOOD CELL SEDIMENTATION RATE INCREASED [None]
  - RESPIRATORY DISORDER [None]
  - TENDERNESS [None]
  - UNEVALUABLE EVENT [None]
  - WEIGHT DECREASED [None]
